FAERS Safety Report 15406993 (Version 1)
Quarter: 2018Q3

REPORT INFORMATION
  Report Type: Spontaneous
  Country: US (occurrence: US)
  Receive Date: 20180919
  Receipt Date: 20180919
  Transmission Date: 20181010
  Serious: Yes (Other)
  Sender: FDA-Public Use
  Company Number: None

PATIENT
  Age: 62 Year
  Sex: Female
  Weight: 57.6 kg

DRUGS (5)
  1. MULTI [Concomitant]
  2. FLAXSEED [Concomitant]
     Active Substance: FLAX SEED
  3. BIOTIN [Concomitant]
     Active Substance: BIOTIN
  4. HARVONI [Suspect]
     Active Substance: LEDIPASVIR\SOFOSBUVIR
     Indication: HEPATITIS C
     Dosage: ?          QUANTITY:1 DF DOSAGE FORM;?
     Route: 048
  5. PROBIOTIC [Concomitant]
     Active Substance: PROBIOTICS NOS

REACTIONS (5)
  - Mental disorder [None]
  - Corneal disorder [None]
  - Weight decreased [None]
  - Insomnia [None]
  - Insurance issue [None]

NARRATIVE: CASE EVENT DATE: 20160101
